FAERS Safety Report 5030042-7 (Version None)
Quarter: 2006Q2

REPORT INFORMATION
  Report Type: 
  Country: None (occurrence: None)
  Receive Date: 20060614
  Receipt Date: 20060606
  Transmission Date: 20061013
  Serious: Yes (Hospitalization)
  Sender: FDA-Public Use
  Company Number: 2006072269

PATIENT
  Sex: Male

DRUGS (1)
  1. LYRICA [Suspect]
     Indication: NEUROPATHY PERIPHERAL
     Dosage: 75 MG (75 MG, PRN), ORAL
     Route: 048

REACTIONS (4)
  - CHEST PAIN [None]
  - NAUSEA [None]
  - PALPITATIONS [None]
  - VOMITING [None]
